FAERS Safety Report 4530043-9 (Version None)
Quarter: 2004Q4

REPORT INFORMATION
  Report Type: 
  Country: None (occurrence: None)
  Receive Date: 20041215
  Receipt Date: 20041215
  Transmission Date: 20050328
  Serious: Yes (Life-Threatening, Hospitalization, Disabling)
  Sender: FDA-Public Use
  Company Number: None

PATIENT
  Age: 31 Year
  Sex: Female
  Weight: 96 kg

DRUGS (6)
  1. NECON 7/7/7     WATSON [Suspect]
     Indication: CONTRACEPTION
     Dosage: 1 PILL A DAY    28 DAYS    ORAL
     Route: 048
     Dates: start: 20020301, end: 20041122
  2. NECON 7/7/7     WATSON [Suspect]
     Indication: MENSTRUAL DISORDER
     Dosage: 1 PILL A DAY    28 DAYS    ORAL
     Route: 048
     Dates: start: 20020301, end: 20041122
  3. TEGRETOL [Concomitant]
  4. LITHIUM [Concomitant]
  5. PAXIL [Concomitant]
  6. ZOLOFT [Concomitant]

REACTIONS (2)
  - DEEP VEIN THROMBOSIS [None]
  - PULMONARY EMBOLISM [None]
